FAERS Safety Report 12346054 (Version 1)
Quarter: 2016Q2

REPORT INFORMATION
  Report Type: Report from Study
  Country: AR (occurrence: AR)
  Receive Date: 20160509
  Receipt Date: 20160509
  Transmission Date: 20160815
  Serious: Yes (Hospitalization)
  Sender: FDA-Public Use
  Company Number: PHHY2016AR061193

PATIENT
  Age: 66 Year
  Sex: Male

DRUGS (3)
  1. DIOVAN [Suspect]
     Active Substance: VALSARTAN
     Indication: CARDIAC DISORDER
     Dosage: 1 DF, QD (160 UNITS WERE NOT PROVIDED)
     Route: 065
  2. EXFORGE [Suspect]
     Active Substance: AMLODIPINE BESYLATE\VALSARTAN
     Indication: PRODUCT USED FOR UNKNOWN INDICATION
     Dosage: 1 DF, 10/320 UNITS NOT PROVIDED (AMLODIPINE,VALSARTAN)
     Route: 065
  3. ONBREZ BREEZHALER [Suspect]
     Active Substance: INDACATEROL
     Indication: PRODUCT USED FOR UNKNOWN INDICATION
     Route: 065

REACTIONS (8)
  - Renal disorder [Recovering/Resolving]
  - Gait disturbance [Recovering/Resolving]
  - Nervous system disorder [Recovering/Resolving]
  - Malaise [Recovering/Resolving]
  - Product use issue [Unknown]
  - Chronic obstructive pulmonary disease [Recovering/Resolving]
  - Cardiac disorder [Recovering/Resolving]
  - Diabetes mellitus [Recovering/Resolving]

NARRATIVE: CASE EVENT DATE: 201509
